FAERS Safety Report 19087296 (Version 2)
Quarter: 2021Q2

REPORT INFORMATION
  Report Type: Report from Study
  Country: UG (occurrence: UG)
  Receive Date: 20210402
  Receipt Date: 20210514
  Transmission Date: 20210717
  Serious: Yes (Life-Threatening, Hospitalization, Other)
  Sender: FDA-Public Use
  Company Number: UG-CIPLA LTD.-2021UG02436

PATIENT

DRUGS (4)
  1. BACTRIM [Concomitant]
     Active Substance: SULFAMETHOXAZOLE\TRIMETHOPRIM
     Indication: PROPHYLAXIS
     Dosage: UNK
     Route: 065
     Dates: start: 20210123
  2. VITAMINS NOS [Concomitant]
     Active Substance: VITAMINS
     Indication: PRODUCT USED FOR UNKNOWN INDICATION
     Dosage: UNK
     Route: 065
     Dates: start: 20170123
  3. LOPINAVIR/RITONAVIR [Suspect]
     Active Substance: LOPINAVIR\RITONAVIR
     Indication: HIV INFECTION
     Dosage: 4 DOSAGE FORM (160MG/40MG) BID
     Route: 048
     Dates: start: 20170724, end: 20181212
  4. ABACAVIR/LAMIVUDINE [Suspect]
     Active Substance: ABACAVIR\LAMIVUDINE
     Indication: HIV INFECTION
     Dosage: 2 DOSAGE FORMS (120MG/60MG BID DAILY) BID
     Route: 048
     Dates: start: 20170724, end: 20181212

REACTIONS (2)
  - Pneumonia [Recovered/Resolved]
  - Measles [Recovered/Resolved]

NARRATIVE: CASE EVENT DATE: 20171222
